FAERS Safety Report 8575407-1 (Version None)
Quarter: 2012Q3

REPORT INFORMATION
  Report Type: 
  Country: None (occurrence: None)
  Receive Date: 20120807
  Receipt Date: 20120802
  Transmission Date: 20120928
  Serious: No
  Sender: FDA-Public Use
  Company Number: US-PFIZER INC-2012152787

PATIENT
  Age: 37 Year
  Sex: Male
  Weight: 97.95 kg

DRUGS (3)
  1. EFFEXOR XR [Suspect]
     Indication: DEPRESSION
     Dosage: 150 MG, 1X/DAY
     Route: 048
     Dates: start: 20120401, end: 20120718
  2. EFFEXOR XR [Suspect]
     Indication: BIPOLAR I DISORDER
     Dosage: 75 MG, 2X/DAY
     Route: 048
     Dates: start: 20110701, end: 20120401
  3. DEPAKOTE [Concomitant]
     Indication: AFFECTIVE DISORDER
     Dosage: UNK

REACTIONS (5)
  - UPPER RESPIRATORY TRACT INFECTION [None]
  - NERVE INJURY [None]
  - DRUG INEFFECTIVE [None]
  - INTERVERTEBRAL DISC PROTRUSION [None]
  - INCORRECT DOSE ADMINISTERED [None]
